FAERS Safety Report 19118501 (Version 1)
Quarter: 2021Q2

REPORT INFORMATION
  Report Type: Spontaneous
  Country: CN (occurrence: CN)
  Receive Date: 20210409
  Receipt Date: 20210409
  Transmission Date: 20210717
  Serious: Yes (Other)
  Sender: FDA-Public Use
  Company Number: CN-PFIZER INC-2021363853

PATIENT
  Age: 72 Year
  Sex: Male

DRUGS (1)
  1. LYRICA [Suspect]
     Active Substance: PREGABALIN
     Indication: POST HERPETIC NEURALGIA
     Dosage: 75 MG, 2X/DAY (75 MG IN MORNING AND 75 MG IN EVENING)
     Route: 048

REACTIONS (7)
  - Deep vein thrombosis [Unknown]
  - Balance disorder [Unknown]
  - Somnolence [Unknown]
  - Therapeutic product effect incomplete [Unknown]
  - Asthenia [Unknown]
  - Muscular weakness [Unknown]
  - Gait disturbance [Unknown]
